FAERS Safety Report 8798920 (Version 3)
Quarter: 2012Q4

REPORT INFORMATION
  Report Type: 
  Country: US (occurrence: US)
  Receive Date: 20120920
  Receipt Date: 20121003
  Transmission Date: 20130627
  Serious: No
  Sender: FDA-Public Use
  Company Number: US-PFIZER INC-2012232018

PATIENT
  Age: 60 Year
  Sex: Male
  Weight: 136 kg

DRUGS (8)
  1. LYRICA [Suspect]
     Indication: FIBROMYALGIA
     Dosage: 75 mg, 2x/day
     Dates: start: 20110928, end: 20120822
  2. LYRICA [Suspect]
     Dosage: 150 mg, 2x/day
     Dates: start: 20120823, end: 20120917
  3. DIOVAN HCT [Concomitant]
     Indication: HYPERTENSION
     Dosage: 25/160mg,daily
  4. NORVASC [Concomitant]
     Indication: HYPERTENSION
     Dosage: 10 mg, daily
  5. METFORMIN HYDROCHLORIDE/SITAGLIPTIN [Concomitant]
     Indication: DIABETES MELLITUS
     Dosage: 50/1000mg,2x/day
  6. LANTUS [Concomitant]
     Indication: DIABETES MELLITUS
     Dosage: 55 IU, daily
  7. INSULIN GLULISINE [Concomitant]
     Indication: DIABETES MELLITUS
     Dosage: 20 IU, 3x/day
  8. NEXIUM [Concomitant]
     Indication: GASTROOESOPHAGEAL REFLUX DISEASE
     Dosage: 40 mg, daily

REACTIONS (1)
  - Oedema peripheral [Unknown]
